FAERS Safety Report 14478282 (Version 1)
Quarter: 2018Q1

REPORT INFORMATION
  Report Type: Spontaneous
  Country: IL (occurrence: IL)
  Receive Date: 20180202
  Receipt Date: 20180202
  Transmission Date: 20180509
  Serious: Yes (Hospitalization, Other)
  Sender: FDA-Public Use
  Company Number: IL-TEVA-2018-IL-851975

PATIENT
  Age: 78 Year
  Sex: Male

DRUGS (2)
  1. KARIN 500MG [Suspect]
     Active Substance: CLARITHROMYCIN
     Route: 065
     Dates: start: 20171218
  2. MOXYPEN 500MG CAPSULES [Suspect]
     Active Substance: AMOXICILLIN
     Route: 065
     Dates: start: 20171218

REACTIONS (3)
  - Hepatitis acute [Unknown]
  - Drug-induced liver injury [None]
  - Biliary dilatation [None]
